FAERS Safety Report 7865503-6 (Version None)
Quarter: 2011Q4

REPORT INFORMATION
  Report Type: 
  Country: None (occurrence: None)
  Receive Date: 20111028
  Receipt Date: 20110107
  Transmission Date: 20120403
  Serious: No
  Sender: FDA-Public Use
  Company Number: US-GLAXOSMITHKLINE-A0904112A

PATIENT
  Age: 84 Year
  Sex: Female

DRUGS (2)
  1. ADVAIR DISKUS 100/50 [Suspect]
     Indication: CHRONIC OBSTRUCTIVE PULMONARY DISEASE
     Dosage: 1BLS PER DAY
     Route: 055
  2. COUMADIN [Concomitant]

REACTIONS (7)
  - VOCAL CORD INFLAMMATION [None]
  - CANDIDIASIS [None]
  - HYPOAESTHESIA ORAL [None]
  - PARAESTHESIA [None]
  - OROPHARYNGEAL PAIN [None]
  - PARAESTHESIA ORAL [None]
  - HYPOAESTHESIA [None]
